FAERS Safety Report 9351597 (Version 1)
Quarter: 2013Q2

REPORT INFORMATION
  Report Type: Spontaneous
  Country: MQ (occurrence: MQ)
  Receive Date: 20130617
  Receipt Date: 20130617
  Transmission Date: 20140414
  Serious: Yes (Death, Life-Threatening)
  Sender: FDA-Public Use
  Company Number: MQ-ROXANE LABORATORIES, INC.-2013-RO-00957RO

PATIENT
  Age: 23 Year
  Sex: 0

DRUGS (3)
  1. CYCLOPHOSPHAMIDE TABLETS USP [Suspect]
     Indication: NEUROMYELITIS OPTICA
  2. RITUXIMAB [Suspect]
     Indication: NEUROMYELITIS OPTICA
  3. MITOXANTRONE [Suspect]
     Indication: NEUROMYELITIS OPTICA

REACTIONS (2)
  - Sepsis [Fatal]
  - Acute myeloid leukaemia [Unknown]
